FAERS Safety Report 8582040-4 (Version None)
Quarter: 2012Q3

REPORT INFORMATION
  Report Type: 
  Country: None (occurrence: None)
  Receive Date: 20120809
  Receipt Date: 20120807
  Transmission Date: 20120928
  Serious: Yes (Other)
  Sender: FDA-Public Use
  Company Number: US-PFIZER INC-2012103395

PATIENT
  Age: 85 Year
  Sex: Female
  Weight: 55.78 kg

DRUGS (3)
  1. PROTONIX [Suspect]
     Dosage: UNK
     Route: 065
     Dates: start: 20111201
  2. PLAVIX [Concomitant]
     Dosage: UNK
  3. LIPITOR [Suspect]
     Dosage: UNK
     Route: 065

REACTIONS (4)
  - COMA [None]
  - COLECTOMY [None]
  - HYPOAESTHESIA [None]
  - ABDOMINAL DISCOMFORT [None]
